FAERS Safety Report 18148438 (Version 1)
Quarter: 2020Q3

REPORT INFORMATION
  Report Type: Spontaneous
  Country: US (occurrence: US)
  Receive Date: 20200814
  Receipt Date: 20200814
  Transmission Date: 20201103
  Serious: Yes (Other)
  Sender: FDA-Public Use
  Company Number: US-ROCHE-2657750

PATIENT
  Sex: Male

DRUGS (7)
  1. OXALIPLATIN. [Suspect]
     Active Substance: OXALIPLATIN
     Indication: PRODUCT USED FOR UNKNOWN INDICATION
     Route: 065
  2. LONSURF [Concomitant]
     Active Substance: TIPIRACIL HYDROCHLORIDE\TRIFLURIDINE
  3. CETUXIMAB. [Suspect]
     Active Substance: CETUXIMAB
     Indication: PRODUCT USED FOR UNKNOWN INDICATION
     Route: 065
  4. IRINOTECAN [Concomitant]
     Active Substance: IRINOTECAN
     Dosage: EVERY 3WEEKS
  5. AVASTIN [Suspect]
     Active Substance: BEVACIZUMAB
     Indication: HEPATIC NEOPLASM
     Dosage: EVERY 3 WEEK
     Route: 065
  6. STIVARGA [Suspect]
     Active Substance: REGORAFENIB
     Indication: COLON CANCER
     Dosage: 2 PILLS FOR 7 DAYS AND 3 FOR 14 DAYS
     Route: 065
     Dates: start: 20200620
  7. XELODA [Suspect]
     Active Substance: CAPECITABINE
     Indication: COLON CANCER
     Route: 065

REACTIONS (10)
  - Metastases to lymph nodes [Unknown]
  - Off label use [Unknown]
  - Blood bilirubin increased [Unknown]
  - Hypotension [Unknown]
  - Loss of consciousness [Unknown]
  - Hepatic enzyme increased [Unknown]
  - Tumour compression [Unknown]
  - Metastatic neoplasm [Unknown]
  - Neuropathy peripheral [Unknown]
  - Intentional product use issue [Unknown]
